FAERS Safety Report 8601116-6 (Version None)
Quarter: 2012Q3

REPORT INFORMATION
  Report Type: 
  Country: None (occurrence: None)
  Receive Date: 20120817
  Receipt Date: 20120815
  Transmission Date: 20120928
  Serious: Yes (Death)
  Sender: FDA-Public Use
  Company Number: PHHY2009BR34635

PATIENT
  Sex: Male
  Weight: 78 kg

DRUGS (2)
  1. DIOVAN [Suspect]
     Indication: BLOOD PRESSURE
  2. EXELON [Suspect]
     Indication: DEMENTIA ALZHEIMER'S TYPE
     Dosage: 9.5 MG (18MG/10CM2), AT NIGHT
     Route: 062
     Dates: start: 20090101

REACTIONS (5)
  - DEATH [None]
  - APPLICATION SITE HYPERSENSITIVITY [None]
  - APPLICATION SITE ERYTHEMA [None]
  - APPLICATION SITE IRRITATION [None]
  - APPLICATION SITE SWELLING [None]
